FAERS Safety Report 5475073-8 (Version None)
Quarter: 2007Q4

REPORT INFORMATION
  Report Type: 
  Country: None (occurrence: None)
  Receive Date: 20071002
  Receipt Date: 20070920
  Transmission Date: 20080405
  Serious: Yes (Disabling, Other)
  Sender: FDA-Public Use
  Company Number: AU-PFIZER INC-2007067453

PATIENT
  Sex: Male

DRUGS (9)
  1. SUTENT [Suspect]
     Indication: METASTATIC RENAL CELL CARCINOMA
     Route: 048
  2. ADALAT [Concomitant]
  3. ISORDIL [Concomitant]
  4. MINAX [Concomitant]
  5. LISINOPRIL [Concomitant]
  6. ZOCOR [Concomitant]
     Indication: BLOOD CHOLESTEROL INCREASED
  7. ZOTON [Concomitant]
     Indication: HIATUS HERNIA
  8. ZOTON [Concomitant]
     Indication: PEPTIC ULCER
  9. MIRTAZAPINE [Concomitant]
     Indication: IRRITABILITY

REACTIONS (8)
  - CONSTIPATION [None]
  - DIARRHOEA [None]
  - DYSGEUSIA [None]
  - FATIGUE [None]
  - HEADACHE [None]
  - INFLUENZA LIKE ILLNESS [None]
  - NAUSEA [None]
  - VOMITING [None]
